FAERS Safety Report 9959351 (Version 2)
Quarter: 2014Q1

REPORT INFORMATION
  Report Type: Report from Study
  Country: US (occurrence: US)
  Receive Date: 20140305
  Receipt Date: 20140305
  Transmission Date: 20141002
  Serious: No
  Sender: FDA-Public Use
  Company Number: US-ABBVIE-13P-163-1048383-00

PATIENT
  Age: 50 Year
  Sex: Female

DRUGS (4)
  1. HUMIRA [Suspect]
     Indication: CROHN^S DISEASE
     Route: 058
     Dates: start: 201201
  2. HUMIRA [Suspect]
     Dates: start: 20130610
  3. PAIN MEDICATION [Concomitant]
     Indication: PAIN
     Route: 048
  4. MAGNESIUM CITRATE [Concomitant]
     Indication: CONSTIPATION
     Route: 048

REACTIONS (4)
  - Regurgitation [Not Recovered/Not Resolved]
  - Crohn^s disease [Unknown]
  - Abdominal pain [Not Recovered/Not Resolved]
  - Nausea [Not Recovered/Not Resolved]
